FAERS Safety Report 7477248-5 (Version None)
Quarter: 2011Q2

REPORT INFORMATION
  Report Type: 
  Country: None (occurrence: None)
  Receive Date: 20110513
  Receipt Date: 20110503
  Transmission Date: 20111010
  Serious: Yes (Other)
  Sender: FDA-Public Use
  Company Number: US-BIOGENIDEC-2011BI016379

PATIENT
  Age: 28 Year
  Sex: Female

DRUGS (1)
  1. TYSABRI [Suspect]
     Indication: MULTIPLE SCLEROSIS
     Route: 042
     Dates: start: 20100604, end: 20110101

REACTIONS (7)
  - MULTIPLE SCLEROSIS RELAPSE [None]
  - PAIN [None]
  - CEREBROVASCULAR ACCIDENT [None]
  - PRURITUS [None]
  - POOR VENOUS ACCESS [None]
  - ANXIETY [None]
  - PAIN IN EXTREMITY [None]
